FAERS Safety Report 5334326-4 (Version None)
Quarter: 2007Q2

REPORT INFORMATION
  Report Type: 
  Country: None (occurrence: None)
  Receive Date: 20070525
  Receipt Date: 20060428
  Transmission Date: 20071010
  Serious: Yes (Death)
  Sender: FDA-Public Use
  Company Number: US-BRISTOL-MYERS SQUIBB COMPANY-13360110

PATIENT
  Age: 43 Year
  Sex: Male

DRUGS (4)
  1. CYTOXAN [Suspect]
     Indication: NEOPLASM MALIGNANT
  2. VIREAD [Concomitant]
  3. SUSTIVA [Concomitant]
  4. EMTRIVA [Concomitant]

REACTIONS (1)
  - MALIGNANT NEOPLASM PROGRESSION [None]
